FAERS Safety Report 20840532 (Version 2)
Quarter: 2022Q2

REPORT INFORMATION
  Report Type: Spontaneous
  Country: US (occurrence: US)
  Receive Date: 20220517
  Receipt Date: 20220525
  Transmission Date: 20220721
  Serious: No
  Sender: FDA-Public Use
  Company Number: US-TAKEDA-2022TUS032799

PATIENT
  Age: 25 Year
  Sex: Female
  Weight: 75 kg

DRUGS (2)
  1. LIVTENCITY [Suspect]
     Active Substance: MARIBAVIR
     Indication: Cytomegalovirus infection
     Dosage: 480 MILLIGRAM, QD
     Route: 048
     Dates: start: 20220316, end: 20220321
  2. LIVTENCITY [Suspect]
     Active Substance: MARIBAVIR
     Indication: Neutropenia

REACTIONS (1)
  - Taste disorder [Recovered/Resolved]

NARRATIVE: CASE EVENT DATE: 20220316
